FAERS Safety Report 10554841 (Version 1)
Quarter: 2014Q4

REPORT INFORMATION
  Report Type: Spontaneous
  Country: MX (occurrence: MX)
  Receive Date: 20141030
  Receipt Date: 20141030
  Transmission Date: 20150529
  Serious: Yes (Other)
  Sender: FDA-Public Use
  Company Number: MX-PFIZER INC-2014299509

PATIENT
  Age: 72 Year
  Sex: Male

DRUGS (3)
  1. LYRICA [Suspect]
     Active Substance: PREGABALIN
     Dosage: 75 MG, 2X/DAY
     Dates: start: 2004
  2. HALCION [Suspect]
     Active Substance: TRIAZOLAM
     Dosage: UNK DF, (1/2 DF DEPENDS HOW HE FEELING) DAILY
     Dates: start: 1984
  3. HALCION [Suspect]
     Active Substance: TRIAZOLAM
     Dosage: UNK DF, (1/4 DF DEPENDS HOW HE FEELING) DAILY

REACTIONS (6)
  - Infarction [Unknown]
  - Balance disorder [Unknown]
  - Vomiting [Unknown]
  - Road traffic accident [Unknown]
  - Ear discomfort [Not Recovered/Not Resolved]
  - Dizziness [Unknown]

NARRATIVE: CASE EVENT DATE: 2009
